FAERS Safety Report 23265491 (Version 1)
Quarter: 2023Q4

REPORT INFORMATION
  Report Type: Spontaneous
  Country: CZ (occurrence: CZ)
  Receive Date: 20231206
  Receipt Date: 20231206
  Transmission Date: 20240109
  Serious: Yes (Hospitalization)
  Sender: FDA-Public Use
  Company Number: CZ-CELLTRION INC.-2022CZ022430

PATIENT

DRUGS (12)
  1. RITUXIMAB [Suspect]
     Active Substance: RITUXIMAB
     Indication: Follicular lymphoma
     Dosage: 375 MILLIGRAM/SQ. METER(787.5 MG) (DAYS 1, 8, 15, 22 OF CYCLE 1 THEN DAY 1 OF CYCLES 2 TO 5)
     Route: 042
     Dates: start: 20220802, end: 20220809
  2. RITUXIMAB [Suspect]
     Active Substance: RITUXIMAB
     Indication: Marginal zone lymphoma
     Dosage: 787.5 MG (DAYS 1, 8, 15, 22 OF CYCLE 1 THEN DAY OF
     Route: 042
     Dates: start: 20220802
  3. RITUXIMAB [Suspect]
     Active Substance: RITUXIMAB
     Indication: Follicular lymphoma stage III
  4. TAFASITAMAB [Suspect]
     Active Substance: TAFASITAMAB
     Indication: Follicular lymphoma
     Dosage: 12 MG/KG (1020MG) (DAYS 1, 8, 15, 22 OF CYCLES 1 TO 3 THEN DAYS 1 AND 15 OF CYCLES 4 TO 12)
     Route: 042
     Dates: start: 20220802, end: 20220809
  5. TAFASITAMAB [Suspect]
     Active Substance: TAFASITAMAB
     Indication: Marginal zone lymphoma
     Dosage: 12 MG/KG (1020MG) (DAYS 1, 8, 15, 22 OF CYCLES 1 TO 3 THEN DAYS 1 AND 15 OF CYCLES 4 TO 12)
     Route: 042
     Dates: start: 20221018
  6. LENALIDOMIDE [Suspect]
     Active Substance: LENALIDOMIDE
     Indication: Follicular lymphoma
     Dosage: 20 MILLIGRAM, DAILY,  (DAYS 1 TO 21 OF CYCLES 1 TO 12)
     Route: 048
     Dates: start: 20220802, end: 20220807
  7. LENALIDOMIDE [Suspect]
     Active Substance: LENALIDOMIDE
     Indication: Marginal zone lymphoma
     Dosage: 20 MILLIGRAM, DAILY,  (DAYS 1 TO 21 OF CYCLES 1 TO 12)
     Route: 048
     Dates: start: 20220808
  8. LENALIDOMIDE [Suspect]
     Active Substance: LENALIDOMIDE
     Dosage: 20 MILLIGRAM, DAILY,  (DAYS 1 TO 21 OF CYCLES 1 TO 12)
     Route: 048
     Dates: start: 20220806
  9. LENALIDOMIDE [Suspect]
     Active Substance: LENALIDOMIDE
     Dosage: 15MG
     Route: 048
     Dates: start: 20221025
  10. LENALIDOMIDE [Suspect]
     Active Substance: LENALIDOMIDE
     Indication: Follicular lymphoma
     Dosage: 20 MG, QD (DAYS 1 TO 21 CYCLES OF 1 TO 12), (CUMULATIVE DOSE TO FIRST REACTION:120 MG)
     Route: 048
     Dates: start: 20220802, end: 20220807
  11. LENALIDOMIDE [Suspect]
     Active Substance: LENALIDOMIDE
     Indication: Marginal zone lymphoma
     Dosage: 20 MG, QD (DAYS 1 TO 21 CYCLES OF 1 TO 12), (CUMULATIVE DOSE TO FIRST REACTION:120 MG)
     Route: 048
     Dates: start: 20220808
  12. LENALIDOMIDE [Suspect]
     Active Substance: LENALIDOMIDE
     Dosage: 15 MG, (CUMULATIVE DOSE TO FIRST REACTION:120 MG)
     Route: 048
     Dates: start: 20221025

REACTIONS (3)
  - General physical health deterioration [Unknown]
  - Infection [Not Recovered/Not Resolved]
  - Intentional product use issue [Unknown]

NARRATIVE: CASE EVENT DATE: 20220809
